FAERS Safety Report 9011124 (Version 1)
Quarter: 2013Q1

REPORT INFORMATION
  Report Type: Spontaneous
  Country: US (occurrence: US)
  Receive Date: 20130111
  Receipt Date: 20130111
  Transmission Date: 20140127
  Serious: Yes (Death)
  Sender: FDA-Public Use
  Company Number: US-009507513-1301USA001413

PATIENT
  Age: 63 Year
  Sex: Male

DRUGS (13)
  1. FOSAMAX [Suspect]
     Indication: PRODUCT USED FOR UNKNOWN INDICATION
  2. LISINOPRIL [Suspect]
  3. BUMETANIDE [Suspect]
  4. SPIRIVA [Suspect]
  5. HUMALOG [Suspect]
     Dosage: 100 IU/ML UNKNOWN
  6. HUMULIN [Suspect]
  7. TRAMADOL HYDROCHLORIDE [Suspect]
  8. HUMULIN [Suspect]
  9. MONTELUKAST SODIUM [Suspect]
  10. NYSTATIN [Suspect]
     Dosage: 100000 U UNKNONW
  11. ACETAMINOPHEN [Suspect]
  12. SALBUTAMOL [Suspect]
     Route: 055
  13. SERETIDE [Suspect]

REACTIONS (1)
  - Lobar pneumonia [Fatal]
